FAERS Safety Report 5395447-3 (Version None)
Quarter: 2007Q3

REPORT INFORMATION
  Report Type: 
  Country: None (occurrence: None)
  Receive Date: 20070724
  Receipt Date: 20070717
  Transmission Date: 20080115
  Serious: Yes (Hospitalization, Other)
  Sender: FDA-Public Use
  Company Number: A0664586A

PATIENT
  Age: 63 Year
  Sex: Female

DRUGS (10)
  1. COREG [Suspect]
     Dosage: 12.5MG TWICE PER DAY
     Route: 048
  2. COREG CR [Suspect]
     Dosage: 40MG PER DAY
     Route: 048
     Dates: start: 20070701, end: 20070710
  3. HYZAAR [Concomitant]
  4. UNSPECIFIED MEDICATION [Concomitant]
  5. LASIX [Concomitant]
  6. PRAVACHOL [Concomitant]
  7. CLONIDINE [Concomitant]
  8. UNSPECIFIED MEDICATION [Concomitant]
  9. PREVACID [Concomitant]
  10. GLUCOTROL XL [Concomitant]

REACTIONS (5)
  - BLOOD PRESSURE DECREASED [None]
  - CHEST DISCOMFORT [None]
  - GASTRITIS [None]
  - MEDICATION ERROR [None]
  - VOMITING [None]
